FAERS Safety Report 19407536 (Version 5)
Quarter: 2022Q4

REPORT INFORMATION
  Report Type: Spontaneous
  Country: US (occurrence: US)
  Receive Date: 20210611
  Receipt Date: 20221209
  Transmission Date: 20230112
  Serious: Yes (Disabling, Other)
  Sender: FDA-Public Use
  Company Number: US-PURDUE-USA-2020-0231493

PATIENT
  Sex: Female

DRUGS (4)
  1. OXYCONTIN [Suspect]
     Active Substance: OXYCODONE HYDROCHLORIDE
     Indication: Back pain
     Dosage: 80 MG, TID
     Route: 048
  2. OXYCODONE HYDROCHLORIDE [Suspect]
     Active Substance: OXYCODONE HYDROCHLORIDE
     Indication: Back pain
     Dosage: 80 MG
     Route: 048
  3. OXYCODONE HYDROCHLORIDE [Suspect]
     Active Substance: OXYCODONE HYDROCHLORIDE
     Indication: Back pain
     Dosage: 30 MG, QID
     Route: 048
  4. ROXICODONE [Suspect]
     Active Substance: OXYCODONE HYDROCHLORIDE
     Indication: Back pain
     Dosage: 30 MG, QID
     Route: 065

REACTIONS (8)
  - Disability [Unknown]
  - Cerebrovascular accident [Unknown]
  - Drug dependence [Unknown]
  - General physical health deterioration [Unknown]
  - Cognitive disorder [Unknown]
  - Loss of personal independence in daily activities [Unknown]
  - Drug withdrawal syndrome [Unknown]
  - Unevaluable event [Unknown]
